FAERS Safety Report 4968581-7 (Version None)
Quarter: 2006Q2

REPORT INFORMATION
  Report Type: 
  Country: None (occurrence: None)
  Receive Date: 20060411
  Receipt Date: 20060330
  Transmission Date: 20061013
  Serious: Yes (Other)
  Sender: FDA-Public Use
  Company Number: PHBS2006JP04970

PATIENT

DRUGS (1)
  1. LAMISIL [Suspect]
     Route: 048
     Dates: start: 20060327

REACTIONS (2)
  - DYSURIA [None]
  - HAEMATURIA [None]
